FAERS Safety Report 8547805-3 (Version None)
Quarter: 2012Q3

REPORT INFORMATION
  Report Type: 
  Country: None (occurrence: None)
  Receive Date: 20120727
  Receipt Date: 20120406
  Transmission Date: 20120928
  Serious: Yes (Other)
  Sender: FDA-Public Use
  Company Number: US-ASTRAZENECA-2012SE06161

PATIENT
  Age: 54 Year
  Sex: Female

DRUGS (4)
  1. SEROQUEL [Suspect]
     Route: 048
  2. SEROQUEL [Suspect]
     Indication: DEPRESSION
     Route: 048
  3. SEROQUEL [Suspect]
     Indication: CRYING
     Route: 048
  4. SEROQUEL [Suspect]
     Route: 048

REACTIONS (7)
  - INCORRECT DOSE ADMINISTERED [None]
  - MALAISE [None]
  - DRUG PRESCRIBING ERROR [None]
  - INTENTIONAL DRUG MISUSE [None]
  - NAUSEA [None]
  - SUICIDAL IDEATION [None]
  - OFF LABEL USE [None]
